FAERS Safety Report 6693725-9 (Version None)
Quarter: 2010Q2

REPORT INFORMATION
  Report Type: 
  Country: None (occurrence: None)
  Receive Date: 20100423
  Receipt Date: 20100419
  Transmission Date: 20101027
  Serious: Yes (Hospitalization)
  Sender: FDA-Public Use
  Company Number: DE-WYE-G05981210

PATIENT
  Age: 69 Year
  Sex: Female

DRUGS (4)
  1. LORAZEPAM [Suspect]
     Dosage: UNKNOWN OVERDOSE AMOUNT
     Route: 048
  2. ACETAMINOPHEN [Suspect]
     Dosage: UNKNOWN OVERDOSE AMOUNT
     Route: 048
  3. IBUPROFEN [Suspect]
     Dosage: UNKNOWN OVERDOSE AMOUNT
     Route: 048
  4. ROHYPNOL [Suspect]
     Dosage: UNKNOWN OVERDOSE AMOUNT
     Route: 048

REACTIONS (5)
  - HYPOTHERMIA [None]
  - INTENTIONAL OVERDOSE [None]
  - RHABDOMYOLYSIS [None]
  - SOMNOLENCE [None]
  - SUICIDE ATTEMPT [None]
